FAERS Safety Report 9015891 (Version 1)
Quarter: 2013Q1

REPORT INFORMATION
  Report Type: Spontaneous
  Country: US (occurrence: US)
  Receive Date: 20130116
  Receipt Date: 20130116
  Transmission Date: 20140127
  Serious: No
  Sender: FDA-Public Use
  Company Number: US-PFIZER INC-2013016336

PATIENT
  Age: 13 Month
  Sex: Female

DRUGS (2)
  1. INFANT ADVIL CONCENTRATED DROPS [Suspect]
     Indication: PYREXIA
     Dosage: UNK
  2. INFANT ADVIL CONCENTRATED DROPS [Suspect]
     Indication: PAIN

REACTIONS (1)
  - Dermatitis diaper [Unknown]
